FAERS Safety Report 8512771-3 (Version None)
Quarter: 2012Q2

REPORT INFORMATION
  Report Type: 
  Country: None (occurrence: None)
  Receive Date: 20120405
  Receipt Date: 20090420
  Transmission Date: 20120825
  Serious: Yes (Hospitalization, Disabling)
  Sender: FDA-Public Use
  Company Number: PHEH2009US03570

PATIENT
  Age: 61 Year
  Sex: Female
  Weight: 79.5 kg

DRUGS (3)
  1. HYZAAR [Concomitant]
  2. RECLAST [Suspect]
     Indication: OSTEOPOROSIS
     Dosage: 5 MG, INFUSION
     Dates: start: 20080926, end: 20080926
  3. EDOLAN (ETODOLAC) [Concomitant]

REACTIONS (3)
  - INFLUENZA LIKE ILLNESS [None]
  - ARTHRALGIA [None]
  - FATIGUE [None]
